FAERS Safety Report 13457273 (Version 1)
Quarter: 2017Q2

REPORT INFORMATION
  Report Type: Spontaneous
  Country: FR (occurrence: FR)
  Receive Date: 20170419
  Receipt Date: 20170419
  Transmission Date: 20170830
  Serious: Yes (Hospitalization, Other)
  Sender: FDA-Public Use
  Company Number: FR-PFIZER INC-2016518142

PATIENT
  Age: 62 Year
  Sex: Female

DRUGS (9)
  1. DOCETAXEL. [Suspect]
     Active Substance: DOCETAXEL
     Indication: BREAST CANCER
     Dosage: 160 MG, CYCLIC
     Route: 042
     Dates: start: 20140516
  2. LEVOTHYROX [Concomitant]
     Active Substance: LEVOTHYROXINE
     Dosage: 25 UG, 1X/DAY
     Route: 048
  3. LETROZOLE MYLAN [Concomitant]
     Active Substance: LETROZOLE
     Dosage: 2.5 MG, DAILY
     Route: 048
     Dates: start: 201409
  4. HERCEPTIN [Suspect]
     Active Substance: TRASTUZUMAB
     Indication: BREAST CANCER
     Dosage: 320 MG, CYCLIC
     Route: 042
     Dates: start: 20140516
  5. DOXORUBICIN HCL [Suspect]
     Active Substance: DOXORUBICIN HYDROCHLORIDE
     Indication: LEIOMYOSARCOMA METASTATIC
     Dosage: 122 MG, CYCLIC
     Route: 042
     Dates: start: 201604, end: 201606
  6. EPIRUBICINE MYLAN [Suspect]
     Active Substance: EPIRUBICIN
     Indication: BREAST CANCER
     Dosage: 155 MG, CYCLIC
     Route: 042
     Dates: start: 2014, end: 2014
  7. ENDOXAN [Suspect]
     Active Substance: CYCLOPHOSPHAMIDE
     Indication: BREAST CANCER
     Dosage: 780 MG, CYCLIC
     Route: 042
     Dates: start: 2014, end: 2014
  8. FLUOROURACILE ACCORD [Concomitant]
     Active Substance: FLUOROURACIL
     Indication: BREAST CANCER
     Dosage: 780 MG, CYCLIC
     Route: 042
     Dates: start: 201403
  9. VOTRIENT [Suspect]
     Active Substance: PAZOPANIB HYDROCHLORIDE
     Indication: LEIOMYOSARCOMA METASTATIC
     Dosage: 800 MG, DAILY
     Route: 048
     Dates: start: 201606, end: 201610

REACTIONS (3)
  - Cardiac failure [Recovering/Resolving]
  - Intracardiac thrombus [Unknown]
  - Congestive cardiomyopathy [Not Recovered/Not Resolved]

NARRATIVE: CASE EVENT DATE: 201609
